FAERS Safety Report 10211728 (Version 1)
Quarter: 2014Q2

REPORT INFORMATION
  Report Type: Spontaneous
  Country: DK (occurrence: FR)
  Receive Date: 20140602
  Receipt Date: 20140602
  Transmission Date: 20141212
  Serious: Yes (Hospitalization)
  Sender: FDA-Public Use
  Company Number: FR-FRI-1000067835

PATIENT
  Age: 0 Day
  Sex: Female
  Weight: 2.91 kg

DRUGS (2)
  1. ESCITALOPRAM [Suspect]
     Dosage: 10 MG
     Route: 064
  2. LEXOMIL ROCHE [Suspect]
     Dosage: 3 MG
     Route: 064

REACTIONS (3)
  - Somnolence [Not Recovered/Not Resolved]
  - Poor weight gain neonatal [Not Recovered/Not Resolved]
  - Poor sucking reflex [Not Recovered/Not Resolved]
